FAERS Safety Report 16236637 (Version 2)
Quarter: 2019Q2

REPORT INFORMATION
  Report Type: Spontaneous
  Country: SE (occurrence: SE)
  Receive Date: 20190425
  Receipt Date: 20190427
  Transmission Date: 20190711
  Serious: Yes (Hospitalization)
  Sender: FDA-Public Use
  Company Number: SE-JNJFOC-20190428540

PATIENT
  Age: 82 Year
  Sex: Female

DRUGS (8)
  1. LOPERAMIDE [Suspect]
     Active Substance: LOPERAMIDE
     Route: 048
  2. SODIUM HYDROGEN CARBONATE [Suspect]
     Active Substance: SODIUM BICARBONATE
     Indication: PRODUCT USED FOR UNKNOWN INDICATION
     Dosage: 1 G AT 8, 1 AT 12, 1 G AT 16 (4 PM) AND 1 G IN EVENING
     Route: 065
  3. LASIX [Suspect]
     Active Substance: FUROSEMIDE
     Indication: PRODUCT USED FOR UNKNOWN INDICATION
     Dosage: 60 MG AT 8
     Route: 065
  4. DUROFERON [Suspect]
     Active Substance: FERROUS SULFATE
     Indication: PRODUCT USED FOR UNKNOWN INDICATION
     Dosage: 100 MG AT 8
     Route: 065
  5. AMLORATIO [Suspect]
     Active Substance: AMLODIPINE BESYLATE
     Indication: PRODUCT USED FOR UNKNOWN INDICATION
     Dosage: 5 MG AT 8
     Route: 065
  6. LOPERAMIDE [Suspect]
     Active Substance: LOPERAMIDE
     Indication: PRODUCT USED FOR UNKNOWN INDICATION
     Dosage: 2 PIECES AT 8 AND 2 PIECES IN THE EVENING
     Route: 048
  7. METOPROLOL. [Suspect]
     Active Substance: METOPROLOL
     Indication: PRODUCT USED FOR UNKNOWN INDICATION
     Dosage: 1 DOSE AT 8
     Route: 065
  8. SIMVASTATIN. [Suspect]
     Active Substance: SIMVASTATIN
     Indication: PRODUCT USED FOR UNKNOWN INDICATION
     Dosage: 20 MG IN THE EVENING
     Route: 065

REACTIONS (4)
  - Product administration error [Unknown]
  - Accidental overdose [Unknown]
  - Confusional state [Unknown]
  - Dizziness [Unknown]

NARRATIVE: CASE EVENT DATE: 20111212
